FAERS Safety Report 9911477 (Version 2)
Quarter: 2014Q1

REPORT INFORMATION
  Report Type: Report from Study
  Country: US (occurrence: US)
  Receive Date: 20140219
  Receipt Date: 20140219
  Transmission Date: 20141002
  Serious: Yes (Hospitalization, Other)
  Sender: FDA-Public Use
  Company Number: PHEH2013US025946

PATIENT
  Age: 49 Year
  Sex: Male
  Weight: 121.5 kg

DRUGS (34)
  1. MYFORTIC [Suspect]
     Indication: TRANSPLANT
     Dosage: 360 MG, BID
     Route: 048
     Dates: start: 201206
  2. MYFORTIC [Suspect]
     Dosage: 360 MG (2 DF), BID
     Route: 048
     Dates: start: 20120720
  3. PROGRAF [Suspect]
     Dosage: 1 MG (1 AM, 1 PM), UNK
     Route: 048
     Dates: start: 201207
  4. PROGRAF [Suspect]
     Dosage: 3 MG, 2 MG AM AND 1 MG PM
     Route: 048
     Dates: start: 201207
  5. PROGRAF [Suspect]
     Dosage: 1 MG, UNK (PM)
     Route: 048
  6. PROGRAF [Suspect]
     Dosage: 2 MG, UNK (AM)
     Route: 048
     Dates: start: 20131207
  7. BACTRIM [Concomitant]
     Dosage: 1 DF(400-80 MG),  3 TIMES A WEEK (MONDAYS, WEDNESDAYS AND FRIDAYS)
     Route: 048
  8. SEPTRA [Concomitant]
     Dosage: 1 DF(400-80 MG),  3 TIMES A WEEK (MONDAYS, WEDNESDAYS AND FRIDAYS)
  9. ZOVIRAX [Concomitant]
     Dosage: 610 MG, UNK
     Route: 042
  10. ZOVIRAX [Concomitant]
     Dosage: UNK UKN (5MG/KG), Q8H
  11. MORPHINE [Concomitant]
     Dosage: 2 MG/ML, UNK
     Route: 042
     Dates: start: 20131205
  12. NARCAN [Concomitant]
     Dosage: UNK UKN, UNK
  13. TYLENOL [Concomitant]
     Dosage: 650 MG, UNK
  14. VICODIN [Concomitant]
     Dosage: 1 DF (5-500 MG), UNK
     Route: 048
     Dates: start: 20131205
  15. COLACE [Concomitant]
     Dosage: 100 MG, UNK
  16. PHENERGAN//PROMETHAZINE [Concomitant]
     Dosage: 25 MG, UNK
     Dates: start: 20131205
  17. PEPCID [Concomitant]
     Indication: DYSPEPSIA
     Dosage: 20 MG, UNK
     Dates: start: 20131205
  18. PEPCID [Concomitant]
     Dosage: 20 MG, PRN (BID)
     Route: 048
  19. PEPCID [Concomitant]
     Dosage: 20 MG, Q12H
  20. XANAX [Concomitant]
     Dosage: 0.25 MG, UNK
  21. RESTORIL [Concomitant]
     Dosage: 15 MG, UNK
  22. SODIUM CHLORIDE [Concomitant]
     Dosage: 250 ML, UNK
     Route: 042
  23. MAXIPIME [Concomitant]
     Dosage: 200 MG, UNK
     Dates: end: 20131205
  24. GARAMYCIN [Concomitant]
     Dosage: 200 MG, UNK
     Dates: end: 20131205
  25. ASPIRIN [Concomitant]
     Dosage: 1 DF, DAILY
     Route: 048
  26. ASPIRIN [Concomitant]
     Dosage: 1 DF, DAILY
     Route: 048
     Dates: start: 20131207
  27. KLONOPIN [Concomitant]
     Indication: ANXIETY
     Dosage: 1 DF, PRN (NIGHTLY)
     Route: 048
  28. KLONOPIN [Concomitant]
     Indication: SLEEP DISORDER
  29. LORCET-HD [Concomitant]
     Dosage: 1 DF (5-500 MG), PRN
  30. MULTIVITAMINS [Concomitant]
     Dosage: 1 DF, DAILY
     Route: 048
  31. CARVEDILOL [Concomitant]
     Dosage: 3.125 MG, BID
     Route: 048
  32. CEFEPIME [Concomitant]
     Dosage: 1 G, Q8H
     Route: 042
  33. MULTI VITAMIN + MINERAL [Concomitant]
     Dosage: UNK UKN, UNK
  34. MYCOPHENOLATE [Concomitant]
     Dosage: 750 MG, Q12H
     Route: 048

REACTIONS (27)
  - Bacterial sepsis [Unknown]
  - Gastroenteritis viral [Recovered/Resolved]
  - Nausea [Recovered/Resolved]
  - Pyrexia [Recovered/Resolved]
  - Diarrhoea [Not Recovered/Not Resolved]
  - Asthenia [Unknown]
  - Vomiting [Unknown]
  - Cholecystitis [Unknown]
  - Myocardial infarction [Unknown]
  - Obesity [Unknown]
  - Immunosuppression [Unknown]
  - Abdominal pain [Unknown]
  - Lung hyperinflation [Unknown]
  - Abdominal mass [Unknown]
  - Renal disorder [Unknown]
  - High density lipoprotein decreased [Unknown]
  - Blood testosterone decreased [Unknown]
  - Crystal urine [Unknown]
  - Urine abnormality [Unknown]
  - Serum ferritin increased [Unknown]
  - Influenza like illness [Unknown]
  - Sinus tachycardia [Unknown]
  - Blood glucose increased [Unknown]
  - Bacterial test positive [Unknown]
  - Blood triglycerides increased [Unknown]
  - Low density lipoprotein increased [Unknown]
  - Immunosuppressant drug level increased [Unknown]
